FAERS Safety Report 8565137 (Version 2)
Quarter: 2014Q2

REPORT INFORMATION
  Report Type: Spontaneous
  Country: US (occurrence: US)
  Receive Date: 20120516
  Receipt Date: 20140512
  Transmission Date: 20141212
  Serious: Yes (Other)
  Sender: FDA-Public Use
  Company Number: US-BAYER-2012-046398

PATIENT
  Sex: Female

DRUGS (14)
  1. YAZ [Suspect]
  2. YASMIN [Suspect]
  3. ROCEPHIN [Concomitant]
     Dosage: 500
  4. DIFLUCAN [Concomitant]
     Dosage: 150
  5. FLAGYL [Concomitant]
     Dosage: 500 [1] BID (TWICE DAILY)
  6. NUVARING [Concomitant]
  7. IBUPROFEN [Concomitant]
  8. SKELAXIN [Concomitant]
  9. PERCOCET [Concomitant]
  10. IRON SULFATE [Concomitant]
     Dosage: 325 MG, BID
  11. COLACE [Concomitant]
     Dosage: 100 MG, UNK
  12. LORATADINE [Concomitant]
     Dosage: DAILY
  13. CLARITIN [Concomitant]
     Dosage: 10 MG, DAILY
  14. CYCLOBENZAPRINE HYDROCHLORIDE [Concomitant]
     Indication: MUSCLE SPASMS
     Dosage: 10 MG, TID

REACTIONS (9)
  - Thrombosis [None]
  - Injury [None]
  - Pain [None]
  - Emotional distress [None]
  - Anxiety [None]
  - Fear [None]
  - Anhedonia [None]
  - Quality of life decreased [None]
  - Gallbladder injury [None]
